FAERS Safety Report 4883682-X (Version None)
Quarter: 2006Q1

REPORT INFORMATION
  Report Type: 
  Country: None (occurrence: None)
  Receive Date: 20060118
  Receipt Date: 20060113
  Transmission Date: 20060701
  Serious: Yes (Life-Threatening, Hospitalization)
  Sender: FDA-Public Use
  Company Number: GB-SANOFI-SYNTHELABO-F01200600088

PATIENT
  Sex: Male

DRUGS (8)
  1. OXALIPLATIN [Suspect]
     Indication: COLON CANCER
     Route: 042
  2. FLUOROURACIL [Suspect]
     Route: 042
  3. LEUCOVORIN [Suspect]
     Route: 042
  4. BEVACIZUMAB [Suspect]
     Route: 042
  5. BACLOFEN [Concomitant]
     Dates: start: 20050527, end: 20051107
  6. CYCLIZINE [Concomitant]
     Dates: start: 20050927
  7. ONDANSETRON [Concomitant]
     Dates: start: 20050927, end: 20050929
  8. NOZINAN [Concomitant]
     Dates: start: 20050927, end: 20051001

REACTIONS (3)
  - HAEMATEMESIS [None]
  - OESOPHAGITIS [None]
  - VOMITING [None]
